FAERS Safety Report 9398674 (Version 1)
Quarter: 2013Q3

REPORT INFORMATION
  Report Type: Spontaneous
  Country: AU (occurrence: AU)
  Receive Date: 20130712
  Receipt Date: 20130712
  Transmission Date: 20140515
  Serious: Yes (Other)
  Sender: FDA-Public Use
  Company Number: PHHY2013AU072562

PATIENT
  Sex: Female

DRUGS (6)
  1. ZOLEDRONIC ACID [Suspect]
  2. AMLODIPINE [Suspect]
  3. PANTOPRAZOLE SANDOZ [Suspect]
  4. MULTIVITAMINS [Concomitant]
  5. IRBESARTAN [Concomitant]
  6. THYROXINE SODIUM [Concomitant]

REACTIONS (2)
  - Hyperkalaemia [Unknown]
  - Renal failure acute [Unknown]
